FAERS Safety Report 23846615 (Version 6)
Quarter: 2024Q3

REPORT INFORMATION
  Report Type: Spontaneous
  Country: CA (occurrence: CA)
  Receive Date: 20240513
  Receipt Date: 20240708
  Transmission Date: 20241017
  Serious: Yes (Hospitalization)
  Sender: CELLTRION
  Company Number: CA-PFIZER INC-202400101072

PATIENT

DRUGS (10)
  1. INFLECTRA [Suspect]
     Active Substance: INFLIXIMAB-DYYB
     Indication: Crohn^s disease
     Dosage: 700 MG, EVERY 4 WEEKS
     Route: 042
     Dates: start: 20240401
  2. INFLECTRA [Suspect]
     Active Substance: INFLIXIMAB-DYYB
     Dosage: 700 MG, EVERY 4 WEEKS (700MG, 4 WEEKS AND 3 DAYS)
     Route: 042
     Dates: start: 20240502
  3. INFLECTRA [Suspect]
     Active Substance: INFLIXIMAB-DYYB
     Dosage: 700 MG, AFTER 8 WEEKS AND 1 DAY(EVERY 4 WEEKS)
     Route: 042
     Dates: start: 20240628
  4. ADVAIR HFA [Concomitant]
     Active Substance: FLUTICASONE PROPIONATE\SALMETEROL XINAFOATE
     Dosage: 500 UG, 2X/DAY (1 INHALATION BID), PMS FLUTICASONE SALDP 50/500 MCG INH
     Route: 045
  5. FLUTICASONE FUROATE [Concomitant]
     Active Substance: FLUTICASONE FUROATE
     Dosage: 27500 NG, 2 VAPORIZATIONS IN EACH NOSTRIL (27.5 MCG)
     Route: 045
  6. BRICANYL [Concomitant]
     Active Substance: TERBUTALINE SULFATE
     Dosage: 500 UG, 4X/DAY, (1 INHALATION QID PRN)
     Route: 065
  7. METHOTREXATE [Concomitant]
     Active Substance: METHOTREXATE
     Dosage: 15 MG, WEEKLY (PMS METHOTREXATE), (METHOTREXATE SUSPENDED FOR 2 WEEKS, RESUME TOMORROW)
     Route: 048
     Dates: start: 202004
  8. JAMP CALCIUM + VITAMIN D [Concomitant]
     Dosage: 1 DF, 1X/DAY (1 TAB OD)
     Route: 048
  9. PREDNISONE [Concomitant]
     Active Substance: PREDNISONE
     Dosage: 1 DF, (TAPERING DOSE (40 MG OD FOR 14 DAYS, THEN 5 MG PER WEEK)
     Route: 065
     Dates: start: 20191116
  10. OLOPATADINE HYDROCHLORIDE [Concomitant]
     Active Substance: OLOPATADINE HYDROCHLORIDE
     Dosage: 1 DF, 1X/DAY, 1 TO 2 DROPS IN BOTH EYES OD
     Route: 047

REACTIONS (3)
  - Hysterectomy [Unknown]
  - Post procedural infection [Recovered/Resolved]
  - Off label use [Unknown]

NARRATIVE: CASE EVENT DATE: 20240101
